FAERS Safety Report 7980016-9 (Version None)
Quarter: 2011Q4

REPORT INFORMATION
  Report Type: 
  Country: None (occurrence: None)
  Receive Date: 20111205
  Receipt Date: 20111117
  Transmission Date: 20120403
  Serious: Yes (Hospitalization)
  Sender: FDA-Public Use
  Company Number: ACO_24379_2011

PATIENT
  Age: 32 Year
  Sex: Female

DRUGS (20)
  1. VITAMIN D (ERGOCALCIFEROL)  /00107901/ [Concomitant]
  2. METHYLPREDNISOLONE [Concomitant]
  3. REBIF [Concomitant]
  4. AVONEX [Concomitant]
  5. OMEGA 3 6 9 (OMEGA 9 FATTY ACIDS, OMEGA-3 FATTY ACIDS, OMEGA-6 FATTY A [Concomitant]
  6. RELPAX [Concomitant]
  7. GABAPENTIN [Concomitant]
  8. FAMPRIDINE-SR (FAMPRIDINE) TABLET [Suspect]
     Indication: MULTIPLE SCLEROSIS
     Dosage: 10 MG, BID, ORAL
     Route: 048
     Dates: start: 20060205
  9. ASCORBIC ACID [Concomitant]
  10. DETROL LA [Concomitant]
  11. PROPRANOLOL [Concomitant]
  12. CALCIUM CARBONATE [Concomitant]
  13. SULFATRIM [Concomitant]
  14. REACTINE [Concomitant]
  15. CIPROLAX [Concomitant]
  16. FLOMAX [Concomitant]
  17. MITOXANTRONE [Concomitant]
  18. VITAMIN B6 [Concomitant]
  19. ALERTEC (MODAFINIL) [Concomitant]
  20. MARIJUANA (CANNABIS SATIVA) [Concomitant]

REACTIONS (10)
  - BLADDER SPASM [None]
  - WHITE BLOOD CELL COUNT INCREASED [None]
  - URETHRAL DISORDER [None]
  - CONDITION AGGRAVATED [None]
  - BLOOD CHLORIDE DECREASED [None]
  - ABDOMINAL PAIN LOWER [None]
  - MULTIPLE SCLEROSIS [None]
  - ALANINE AMINOTRANSFERASE DECREASED [None]
  - BLADDER PAIN [None]
  - URINARY INCONTINENCE [None]
